FAERS Safety Report 18292881 (Version 1)
Quarter: 2020Q3

REPORT INFORMATION
  Report Type: Report from Study
  Country: IT (occurrence: IT)
  Receive Date: 20200922
  Receipt Date: 20200922
  Transmission Date: 20201103
  Serious: Yes (Hospitalization)
  Sender: FDA-Public Use
  Company Number: IT-TEVA-2020-IT-1828980

PATIENT
  Age: 67 Year
  Sex: Female

DRUGS (4)
  1. METFORMIN [Suspect]
     Active Substance: METFORMIN HYDROCHLORIDE
     Indication: DIABETES MELLITUS
     Dosage: 2000 MG
     Route: 048
     Dates: start: 20190101
  2. HUMALOG [Interacting]
     Active Substance: INSULIN LISPRO
     Indication: TYPE 2 DIABETES MELLITUS
     Dosage: 15 IU
     Route: 058
     Dates: start: 20190926, end: 20200704
  3. IDELALISIB [Concomitant]
     Active Substance: IDELALISIB
  4. TOUJEO [Interacting]
     Active Substance: INSULIN GLARGINE
     Indication: TYPE 2 DIABETES MELLITUS
     Dosage: 10 IU
     Route: 058
     Dates: start: 20190101, end: 20200704

REACTIONS (2)
  - Drug interaction [Recovering/Resolving]
  - Hypoglycaemia [Recovering/Resolving]

NARRATIVE: CASE EVENT DATE: 20200731
